FAERS Safety Report 4966033-1 (Version None)
Quarter: 2006Q2

REPORT INFORMATION
  Report Type: 
  Country: None (occurrence: None)
  Receive Date: 20060407
  Receipt Date: 20060324
  Transmission Date: 20061013
  Serious: Yes (Other)
  Sender: FDA-Public Use
  Company Number: 2006JP000714

PATIENT
  Age: 51 Year
  Sex: Male

DRUGS (1)
  1. CEFAMEZIN [Suspect]
     Indication: INFECTION PROPHYLAXIS
     Route: 042
     Dates: start: 20060316, end: 20060316

REACTIONS (1)
  - SHOCK [None]
